FAERS Safety Report 23927913 (Version 2)
Quarter: 2025Q3

REPORT INFORMATION
  Report Type: Spontaneous
  Country: US (occurrence: US)
  Receive Date: 20240531
  Receipt Date: 20250703
  Transmission Date: 20251020
  Serious: No
  Sender: RADIUS PHARM
  Company Number: US-RADIUS HEALTH INC.-2023US003301

PATIENT
  Sex: Female

DRUGS (8)
  1. TYMLOS [Suspect]
     Active Substance: ABALOPARATIDE
     Indication: Bone density abnormal
     Route: 058
     Dates: start: 20230531
  2. CLOBETASOL [Concomitant]
     Active Substance: CLOBETASOL
     Indication: Product used for unknown indication
  3. HALOBETASOL [Concomitant]
     Active Substance: HALOBETASOL
     Indication: Product used for unknown indication
  4. ACETAMINOPHEN\CODEINE PHOSPHATE [Concomitant]
     Active Substance: ACETAMINOPHEN\CODEINE PHOSPHATE
     Indication: Product used for unknown indication
  5. CROMOLYN SODIUM [Concomitant]
     Active Substance: CROMOLYN SODIUM
     Indication: Product used for unknown indication
  6. ACETAMINOPHEN\HYDROCODONE [Concomitant]
     Active Substance: ACETAMINOPHEN\HYDROCODONE
     Indication: Product used for unknown indication
  7. KETOTIFEN FUMARATE [Concomitant]
     Active Substance: KETOTIFEN FUMARATE
     Indication: Product used for unknown indication
  8. CALCIUM\VITAMIN D [Concomitant]
     Active Substance: CALCIUM\VITAMIN D
     Indication: Product used for unknown indication

REACTIONS (6)
  - Palpitations [Unknown]
  - Heart rate increased [Unknown]
  - Pollakiuria [Unknown]
  - Loss of personal independence in daily activities [Unknown]
  - Injection site reaction [Unknown]
  - Heart rate irregular [Unknown]
